FAERS Safety Report 16540337 (Version 1)
Quarter: 2019Q3

REPORT INFORMATION
  Report Type: Spontaneous
  Country: AR (occurrence: AR)
  Receive Date: 20190708
  Receipt Date: 20190708
  Transmission Date: 20191004
  Serious: Yes (Death, Hospitalization)
  Sender: FDA-Public Use
  Company Number: AR-PFIZER INC-2019291365

PATIENT
  Age: 61 Year
  Sex: Female

DRUGS (1)
  1. XELJANZ [Suspect]
     Active Substance: TOFACITINIB CITRATE
     Indication: RHEUMATOID ARTHRITIS
     Dosage: 5 MG, 2X/DAY
     Dates: start: 20160201

REACTIONS (6)
  - Death [Fatal]
  - Coma [Unknown]
  - Pain [Unknown]
  - Arthritis bacterial [Unknown]
  - Malaise [Unknown]
  - Lung infection [Unknown]

NARRATIVE: CASE EVENT DATE: 201904
